FAERS Safety Report 6507765-3 (Version None)
Quarter: 2009Q4

REPORT INFORMATION
  Report Type: 
  Country: None (occurrence: None)
  Receive Date: 20091221
  Receipt Date: 20091214
  Transmission Date: 20100525
  Serious: Yes (Hospitalization, Other)
  Sender: FDA-Public Use
  Company Number: ES-SANOFI-AVENTIS-2009SA009068

PATIENT
  Age: 71 Year
  Sex: Female

DRUGS (6)
  1. SEGURIL [Suspect]
     Indication: DRUG USE FOR UNKNOWN INDICATION
     Route: 048
     Dates: start: 20070701, end: 20090713
  2. TRANKIMAZIN [Interacting]
     Indication: DEPRESSION
     Route: 048
     Dates: start: 20090710, end: 20090712
  3. CITALOPRAM HYDROBROMIDE [Interacting]
     Indication: DEPRESSION
     Route: 048
     Dates: start: 20090710, end: 20090712
  4. OMEPRAZOLE [Concomitant]
     Route: 048
     Dates: start: 20070601
  5. DAFLON [Concomitant]
     Route: 048
     Dates: start: 20090105
  6. VALS [Concomitant]
     Indication: HYPERTENSION
     Route: 048
     Dates: start: 20080828

REACTIONS (2)
  - DRUG INTERACTION [None]
  - ENCEPHALOPATHY [None]
